FAERS Safety Report 20566634 (Version 2)
Quarter: 2022Q1

REPORT INFORMATION
  Report Type: Spontaneous
  Country: TR (occurrence: TR)
  Receive Date: 20220308
  Receipt Date: 20220323
  Transmission Date: 20220423
  Serious: Yes (Other)
  Sender: FDA-Public Use
  Company Number: TR-ELI_LILLY_AND_COMPANY-TR202202011076

PATIENT
  Age: 30 Year
  Sex: Male

DRUGS (3)
  1. IXEKIZUMAB [Suspect]
     Active Substance: IXEKIZUMAB
     Indication: Psoriatic arthropathy
     Dosage: 80 MG, OTHER SINGLE LOADING DOSE
     Route: 065
  2. IXEKIZUMAB [Suspect]
     Active Substance: IXEKIZUMAB
     Dosage: 80 UNK, UNKNOWN
     Route: 065
  3. POMED [Concomitant]
     Indication: Product used for unknown indication

REACTIONS (8)
  - Dizziness [Recovered/Resolved]
  - Viral infection [Unknown]
  - Asthenia [Unknown]
  - Influenza [Unknown]
  - Hypotension [Recovered/Resolved]
  - Fatigue [Unknown]
  - Pyrexia [Recovered/Resolved]
  - Inappropriate schedule of product administration [Unknown]

NARRATIVE: CASE EVENT DATE: 20220201
